FAERS Safety Report 8137733-X (Version None)
Quarter: 2012Q1

REPORT INFORMATION
  Report Type: 
  Country: None (occurrence: None)
  Receive Date: 20120215
  Receipt Date: 20120214
  Transmission Date: 20120608
  Serious: No
  Sender: FDA-Public Use
  Company Number: US-PFIZER INC-2012040007

PATIENT
  Sex: Female
  Weight: 63.492 kg

DRUGS (2)
  1. VICODIN [Concomitant]
     Indication: BURSITIS
     Dosage: UNK, 2X/DAY
  2. CHANTIX [Suspect]
     Indication: SMOKING CESSATION THERAPY
     Dosage: 0.5 MG, 1X/DAY
     Route: 048
     Dates: start: 20120210

REACTIONS (4)
  - FEELING ABNORMAL [None]
  - INSOMNIA [None]
  - ANXIETY [None]
  - POOR QUALITY SLEEP [None]
